FAERS Safety Report 9159406 (Version 1)
Quarter: 2013Q1

REPORT INFORMATION
  Report Type: Spontaneous
  Country: GB (occurrence: None)
  Receive Date: 20130212
  Receipt Date: 20130212
  Transmission Date: 20140127
  Serious: Yes (Other)
  Sender: FDA-Public Use
  Company Number: GB-CLINIGEN HEALTHCARE LIMITED-003039

PATIENT
  Age: 18 Year
  Sex: Female

DRUGS (7)
  1. FOSCAVIR (FOSCAVIR) [Suspect]
  2. FOSCAVIR (FOSCAVIR) [Suspect]
     Route: 061
  3. CICLOSPORIN A [Suspect]
  4. (FOSCAVIR [Suspect]
     Route: 061
  5. VALACICLOVIR [Concomitant]
  6. ACICLOVIR [Concomitant]
  7. MYCOPHENOLATE MOFETIL (MYCOPHENOLATE MOFETIL) [Concomitant]

REACTIONS (8)
  - Graft versus host disease in skin [None]
  - Renal impairment [None]
  - Blood creatinine increased [None]
  - Genital herpes [None]
  - Anal ulcer [None]
  - Drug resistance [None]
  - Off label use [None]
  - Genital ulceration [None]
